FAERS Safety Report 18900919 (Version 1)
Quarter: 2021Q1

REPORT INFORMATION
  Report Type: Spontaneous
  Country: GB (occurrence: GB)
  Receive Date: 20210216
  Receipt Date: 20210216
  Transmission Date: 20210420
  Serious: Yes (Other)
  Sender: FDA-Public Use
  Company Number: GB-INSUD PHARMA-2102GB00160

PATIENT

DRUGS (1)
  1. NUVESSA [Suspect]
     Active Substance: METRONIDAZOLE
     Indication: GRAFT INFECTION
     Dosage: LONG?TERM THERAPY
     Route: 065

REACTIONS (5)
  - Hypoaesthesia [Recovering/Resolving]
  - Toxic encephalopathy [Recovering/Resolving]
  - Alien limb syndrome [Recovering/Resolving]
  - Confusional state [Recovering/Resolving]
  - Fall [Recovering/Resolving]
